FAERS Safety Report 15856482 (Version 1)
Quarter: 2019Q1

REPORT INFORMATION
  Report Type: Spontaneous
  Country: US (occurrence: US)
  Receive Date: 20190123
  Receipt Date: 20190123
  Transmission Date: 20190417
  Serious: No
  Sender: FDA-Public Use
  Company Number: US-009507513-1901USA005905

PATIENT

DRUGS (1)
  1. FOSAMAX [Suspect]
     Active Substance: ALENDRONATE SODIUM
     Dosage: 1 TABLET A DAY FOR 12 DAYS
     Route: 048

REACTIONS (3)
  - Incorrect dose administered [Unknown]
  - Overdose [Unknown]
  - No adverse event [Unknown]
